FAERS Safety Report 8718849 (Version 2)
Quarter: 2012Q4

REPORT INFORMATION
  Report Type: 
  Country: AU (occurrence: AU)
  Receive Date: 20120810
  Receipt Date: 20120928
  Transmission Date: 20130627
  Serious: Yes (Hospitalization)
  Sender: FDA-Public Use
  Company Number: AU-MERCK-1208AUS003710

PATIENT
  Age: 85 Year
  Sex: Female

DRUGS (3)
  1. ZOCOR [Suspect]
     Indication: HYPERCHOLESTEROLAEMIA
     Dosage: 20 mg, qd
     Route: 048
  2. VORICONAZOLE [Interacting]
     Dosage: 200 mg, bid
     Route: 048
  3. INSULIN [Concomitant]
     Indication: TYPE 1 DIABETES MELLITUS

REACTIONS (2)
  - Drug interaction [Unknown]
  - Rhabdomyolysis [Not Recovered/Not Resolved]
